FAERS Safety Report 7016842-2 (Version None)
Quarter: 2010Q3

REPORT INFORMATION
  Report Type: 
  Country: None (occurrence: None)
  Receive Date: 20100927
  Receipt Date: 20100913
  Transmission Date: 20110219
  Serious: Yes (Hospitalization, Other)
  Sender: FDA-Public Use
  Company Number: TR-GENENTECH-306743

PATIENT
  Age: 43 Year
  Sex: Male

DRUGS (9)
  1. RITUXIMAB [Suspect]
     Indication: TRANSPLANT REJECTION
     Dosage: 375 MG/M2, UNK
     Route: 042
  2. DACLIZUMAB [Suspect]
     Indication: PROPHYLAXIS AGAINST TRANSPLANT REJECTION
     Dosage: UNK
     Route: 065
  3. MYCOPHENOLATE MOFETIL [Suspect]
     Indication: PROPHYLAXIS AGAINST TRANSPLANT REJECTION
     Dosage: UNK
     Route: 065
  4. MYCOPHENOLATE MOFETIL [Suspect]
     Dosage: UNK
     Route: 065
  5. MYCOPHENOLATE MOFETIL [Suspect]
     Dosage: UNK
     Route: 065
  6. TACROLIMUS [Suspect]
     Indication: PROPHYLAXIS AGAINST TRANSPLANT REJECTION
     Dosage: UNK
     Route: 065
  7. TACROLIMUS [Suspect]
     Dosage: UNK
     Route: 065
  8. PREDNISOLONE [Suspect]
     Indication: PROPHYLAXIS AGAINST TRANSPLANT REJECTION
     Dosage: UNK
     Route: 065
  9. PREDNISOLONE [Suspect]
     Dosage: UNK
     Route: 065

REACTIONS (7)
  - BLOOD CREATININE INCREASED [None]
  - CYTOMEGALOVIRUS VIRAEMIA [None]
  - DIARRHOEA [None]
  - HYPOGAMMAGLOBULINAEMIA [None]
  - PANCYTOPENIA [None]
  - PNEUMONIA [None]
  - SEPSIS [None]
